FAERS Safety Report 11744180 (Version 1)
Quarter: 2015Q4

REPORT INFORMATION
  Report Type: Report from Study
  Country: TR (occurrence: TR)
  Receive Date: 20151116
  Receipt Date: 20151116
  Transmission Date: 20160304
  Serious: Yes (Other)
  Sender: FDA-Public Use
  Company Number: TR-BAXTER-2015BAX060463

PATIENT
  Sex: Female

DRUGS (10)
  1. ATROPINE. [Suspect]
     Active Substance: ATROPINE
     Indication: NEUROMUSCULAR BLOCKADE
     Route: 065
  2. SEVOFLURANE. [Suspect]
     Active Substance: SEVOFLURANE
     Indication: MAINTENANCE OF ANAESTHESIA
     Dosage: 1-1.5 %
     Route: 055
  3. ROCURONIUM [Suspect]
     Active Substance: ROCURONIUM BROMIDE
     Indication: MUSCLE RELAXANT THERAPY
     Route: 042
  4. THIOPENTAL [Suspect]
     Active Substance: THIOPENTAL
     Indication: INDUCTION OF ANAESTHESIA
     Dosage: 4-5 MG/KG
     Route: 065
  5. NITROUS OXIDE. [Suspect]
     Active Substance: NITROUS OXIDE
     Indication: MAINTENANCE OF ANAESTHESIA
     Route: 065
  6. TRAMADOL HYDROCHLORIDE. [Suspect]
     Active Substance: TRAMADOL HYDROCHLORIDE
     Indication: PRODUCT USED FOR UNKNOWN INDICATION
     Route: 042
  7. OXYTOCIN. [Suspect]
     Active Substance: OXYTOCIN
     Indication: PRODUCT USED FOR UNKNOWN INDICATION
     Dosage: 10 IU/L OVER THE FIRST 24 HOURS FOLLOWING DELIVERY
     Route: 042
  8. OXYTOCIN. [Suspect]
     Active Substance: OXYTOCIN
     Dosage: 10 IU/L OVER THE FIRST 24 HOURS AFTER DELIVERY
     Route: 042
  9. NEOSTIGMINE [Suspect]
     Active Substance: NEOSTIGMINE
     Indication: NEUROMUSCULAR BLOCKADE
     Route: 065
  10. METHYLERGOBASINE MALEATE [Suspect]
     Active Substance: METHYLERGONOVINE MALEATE
     Indication: PRODUCT USED FOR UNKNOWN INDICATION
     Route: 030

REACTIONS (4)
  - Postpartum haemorrhage [Unknown]
  - Caesarean section [None]
  - Maternal exposure during delivery [None]
  - Exposure during pregnancy [Recovered/Resolved]
